FAERS Safety Report 16727493 (Version 2)
Quarter: 2020Q1

REPORT INFORMATION
  Report Type: Spontaneous
  Country: US (occurrence: US)
  Receive Date: 20190822
  Receipt Date: 20200114
  Transmission Date: 20200409
  Serious: No
  Sender: FDA-Public Use
  Company Number: US-MTPC-MTDA2019-0068109

PATIENT

DRUGS (2)
  1. RADICAVA [Suspect]
     Active Substance: EDARAVONE
     Indication: AMYOTROPHIC LATERAL SCLEROSIS
     Dosage: 60 MG OVER 60 MIN, QD FOR 14 DAYS FOLLOWED BY A 14 DAY DRUG FREE PERIOD
     Route: 042
     Dates: start: 20181008
  2. RADICAVA [Suspect]
     Active Substance: EDARAVONE
     Dosage: 60 MG OVER 60 MIN, QD FOR 10 DAYS OUT OF 14 DAY PERIODS FOLLOWED BY A 14 DAY DRUG FREE PERIOD
     Route: 042
     Dates: end: 201912

REACTIONS (2)
  - Condition aggravated [Unknown]
  - Mobility decreased [Not Recovered/Not Resolved]
